FAERS Safety Report 23773074 (Version 10)
Quarter: 2025Q1

REPORT INFORMATION
  Report Type: Report from Study
  Country: CA (occurrence: CA)
  Receive Date: 20240423
  Receipt Date: 20250305
  Transmission Date: 20250409
  Serious: Yes (Other)
  Sender: TAKEDA
  Company Number: CA-TAKEDA-2024TUS011469

PATIENT
  Age: 50 Year
  Sex: Male

DRUGS (4)
  1. VEDOLIZUMAB [Suspect]
     Active Substance: VEDOLIZUMAB
     Indication: Colitis ulcerative
  2. VEDOLIZUMAB [Suspect]
     Active Substance: VEDOLIZUMAB
     Indication: Colitis ulcerative
     Dosage: 108 MILLIGRAM, Q2WEEKS
     Dates: start: 20240105
  3. VEDOLIZUMAB [Suspect]
     Active Substance: VEDOLIZUMAB
     Dosage: 108 MILLIGRAM, 1/WEEK
  4. MESALAMINE [Concomitant]
     Active Substance: MESALAMINE
     Dosage: 4.8 GRAM, QD
     Dates: start: 2006

REACTIONS (35)
  - Colitis ulcerative [Recovering/Resolving]
  - Haematochezia [Unknown]
  - Pneumonia [Unknown]
  - Cold sweat [Unknown]
  - Food poisoning [Unknown]
  - Gastrointestinal infection [Unknown]
  - Panic attack [Unknown]
  - Stress [Unknown]
  - Anxiety [Unknown]
  - Abdominal pain upper [Unknown]
  - Pain [Unknown]
  - Ear congestion [Unknown]
  - Defaecation urgency [Unknown]
  - Frequent bowel movements [Not Recovered/Not Resolved]
  - Incorrect dose administered [Unknown]
  - Faeces soft [Unknown]
  - Inflammation [Unknown]
  - Drug effect less than expected [Unknown]
  - Viral infection [Unknown]
  - Off label use [Unknown]
  - Ear infection [Unknown]
  - Feeling abnormal [Unknown]
  - Defaecation urgency [Not Recovered/Not Resolved]
  - Gastrointestinal sounds abnormal [Not Recovered/Not Resolved]
  - White blood cell count increased [Not Recovered/Not Resolved]
  - Mucous stools [Not Recovered/Not Resolved]
  - Haemorrhoids [Unknown]
  - Abdominal distension [Unknown]
  - Flatulence [Unknown]
  - Nasopharyngitis [Unknown]
  - Sinusitis [Unknown]
  - Oropharyngeal pain [Unknown]
  - Fatigue [Unknown]
  - Pyrexia [Unknown]
  - Nausea [Unknown]

NARRATIVE: CASE EVENT DATE: 20240205
